FAERS Safety Report 7865701-1 (Version None)
Quarter: 2011Q4

REPORT INFORMATION
  Report Type: 
  Country: None (occurrence: None)
  Receive Date: 20111028
  Receipt Date: 20110210
  Transmission Date: 20120403
  Serious: No
  Sender: FDA-Public Use
  Company Number: US-GLAXOSMITHKLINE-A0912915A

PATIENT
  Age: 69 Year
  Sex: Female

DRUGS (4)
  1. SINGULAIR [Concomitant]
  2. ZESTRIL [Concomitant]
  3. ADVAIR DISKUS 100/50 [Suspect]
     Indication: ASTHMA
     Dosage: 1PUFF TWICE PER DAY
     Route: 055
     Dates: start: 20000101, end: 20110101
  4. VALACYCLOVIR [Suspect]
     Indication: HERPES ZOSTER

REACTIONS (6)
  - BRONCHITIS [None]
  - PERFUME SENSITIVITY [None]
  - EYE PAIN [None]
  - DRUG INEFFECTIVE [None]
  - APHONIA [None]
  - HEADACHE [None]
